FAERS Safety Report 9295142 (Version 2)
Quarter: 2013Q2

REPORT INFORMATION
  Report Type: Spontaneous
  Country: US (occurrence: US)
  Receive Date: 20130517
  Receipt Date: 20130612
  Transmission Date: 20140414
  Serious: Yes (Congenital Anomaly, Other)
  Sender: FDA-Public Use
  Company Number: US-PFIZER INC-2013149411

PATIENT
  Sex: Male

DRUGS (7)
  1. ZOLOFT [Suspect]
     Dosage: UNK
     Route: 064
  2. CLONAZEPAM [Concomitant]
     Dosage: UNK
     Route: 064
  3. CYMBALTA [Concomitant]
     Dosage: UNK
     Route: 064
  4. HYDROCODONE [Concomitant]
     Dosage: UNK
     Route: 064
  5. FLUCONAZOLE [Concomitant]
     Dosage: UNK
     Route: 064
  6. PRENATAL VITAMINS [Concomitant]
     Dosage: UNK
     Route: 064
  7. NITROFURANTOIN [Concomitant]
     Dosage: UNK
     Route: 064

REACTIONS (2)
  - Foetal exposure during pregnancy [Unknown]
  - Talipes [Unknown]
